FAERS Safety Report 17524444 (Version 1)
Quarter: 2020Q1

REPORT INFORMATION
  Report Type: Spontaneous
  Country: US (occurrence: US)
  Receive Date: 20200311
  Receipt Date: 20200311
  Transmission Date: 20200409
  Serious: Yes (Hospitalization)
  Sender: FDA-Public Use
  Company Number: US-TEVA-2020-US-1196884

PATIENT
  Age: 51 Year
  Sex: Male

DRUGS (3)
  1. CASSIA CINNAMON [Suspect]
     Active Substance: CINNAMON\HERBALS
     Indication: PHYTOTHERAPY
     Route: 065
  2. ASPIRIN. [Concomitant]
     Active Substance: ASPIRIN
     Dosage: HOME MEDICATION
     Route: 065
  3. ATORVASTATIN [Suspect]
     Active Substance: ATORVASTATIN
     Indication: HYPERLIPIDAEMIA
     Dosage: HOME MEDICATION
     Route: 065

REACTIONS (1)
  - Hepatitis acute [Recovering/Resolving]
